FAERS Safety Report 22529222 (Version 1)
Quarter: 2023Q2

REPORT INFORMATION
  Report Type: Other
  Country: None (occurrence: US)
  Receive Date: 20230607
  Receipt Date: 20230607
  Transmission Date: 20230722
  Serious: Yes (Hospitalization)
  Sender: FDA-Public Use
  Company Number: US-OrBion Pharmaceuticals Private Limited-2142415

PATIENT
  Age: 60 Year
  Sex: Male

DRUGS (2)
  1. OLANZAPINE [Suspect]
     Active Substance: OLANZAPINE
     Indication: Appetite disorder
     Route: 048
  2. OLANZAPINE [Suspect]
     Active Substance: OLANZAPINE
     Indication: Sleep disorder

REACTIONS (9)
  - Dizziness [Recovered/Resolved]
  - Joint stiffness [Recovered/Resolved]
  - Muscle rigidity [Recovered/Resolved]
  - Tremor [Recovered/Resolved]
  - Urinary incontinence [Recovered/Resolved]
  - Delirium [Recovered/Resolved]
  - Hyperammonaemia [Recovered/Resolved]
  - Hepatic encephalopathy [Recovered/Resolved]
  - Off label use [Recovered/Resolved]
